FAERS Safety Report 7587770-9 (Version None)
Quarter: 2011Q3

REPORT INFORMATION
  Report Type: 
  Country: None (occurrence: None)
  Receive Date: 20110705
  Receipt Date: 20110624
  Transmission Date: 20111222
  Serious: No
  Sender: FDA-Public Use
  Company Number: US-BIOGENIDEC-2010BI032694

PATIENT
  Age: 52 Year
  Sex: Female

DRUGS (2)
  1. TYSABRI [Suspect]
     Indication: MULTIPLE SCLEROSIS
     Route: 042
     Dates: start: 20081001, end: 20090217
  2. TYSABRI [Suspect]
     Route: 042
     Dates: start: 20100817, end: 20100914

REACTIONS (3)
  - MUSCLE SPASMS [None]
  - CHILLS [None]
  - HYPERSENSITIVITY [None]
